FAERS Safety Report 6024688-7 (Version None)
Quarter: 2008Q4

REPORT INFORMATION
  Report Type: 
  Country: None (occurrence: None)
  Receive Date: 20081231
  Receipt Date: 20081223
  Transmission Date: 20090506
  Serious: Yes (Other)
  Sender: FDA-Public Use
  Company Number: US-BAYER-200813247BCC

PATIENT
  Age: 49 Year
  Sex: Female
  Weight: 98 kg

DRUGS (17)
  1. CAMPHO-PHENIQUE ANTISEPTIC GEL [Suspect]
     Indication: ORAL HERPES
     Route: 061
     Dates: start: 20071110, end: 20071111
  2. ANBESOL [Suspect]
     Indication: DRUG USE FOR UNKNOWN INDICATION
  3. HUMALOG [Concomitant]
  4. VASOTEC [Concomitant]
  5. LEVOXYL [Concomitant]
  6. ZOLOFT [Concomitant]
  7. NEXIUM [Concomitant]
  8. NEURONTIN [Concomitant]
  9. PREMARIN [Concomitant]
  10. TOPROL-XL [Concomitant]
  11. BACLOFEN [Concomitant]
  12. ACETAMINOPHEN [Concomitant]
  13. MOTRIN [Concomitant]
  14. VALIUM [Concomitant]
  15. DIFLUCAN [Concomitant]
  16. ZOLOFT [Concomitant]
  17. SIMVASTATIN [Concomitant]

REACTIONS (6)
  - CHEMICAL BURN OF SKIN [None]
  - HYPOAESTHESIA ORAL [None]
  - LIP BLISTER [None]
  - LIP PAIN [None]
  - OEDEMA MOUTH [None]
  - ORAL PAIN [None]
